FAERS Safety Report 22131044 (Version 1)
Quarter: 2023Q1

REPORT INFORMATION
  Report Type: Spontaneous
  Country: None (occurrence: US)
  Receive Date: 20230323
  Receipt Date: 20230323
  Transmission Date: 20230418
  Serious: No
  Sender: FDA-Public Use
  Company Number: US-Breckenridge Pharmaceutical, Inc.-2139432

PATIENT
  Sex: Male

DRUGS (1)
  1. ASENAPINE [Suspect]
     Active Substance: ASENAPINE
     Route: 060

REACTIONS (5)
  - Oral mucosal blistering [Unknown]
  - Hypoaesthesia [Unknown]
  - Angular cheilitis [Unknown]
  - Dysgeusia [Unknown]
  - Product residue present [Unknown]
